FAERS Safety Report 8957109 (Version 2)
Quarter: 2012Q4

REPORT INFORMATION
  Report Type: 
  Country: FR (occurrence: FR)
  Receive Date: 20121211
  Receipt Date: 20121224
  Transmission Date: 20130627
  Serious: Yes (Other)
  Sender: FDA-Public Use
  Company Number: FR-ROCHE-1165920

PATIENT
  Age: 54 Year
  Sex: Male

DRUGS (1)
  1. ZELBORAF [Suspect]
     Indication: METASTATIC MALIGNANT MELANOMA
     Route: 065

REACTIONS (6)
  - Rash generalised [Recovering/Resolving]
  - Keratosis pilaris [Recovering/Resolving]
  - Hyperkeratosis [Recovering/Resolving]
  - Eosinophilia [Recovering/Resolving]
  - Renal failure acute [Recovering/Resolving]
  - Hepatocellular injury [Recovering/Resolving]
